FAERS Safety Report 9768159 (Version 4)
Quarter: 2014Q1

REPORT INFORMATION
  Report Type: Spontaneous
  Country: US (occurrence: US)
  Receive Date: 20131217
  Receipt Date: 20140121
  Transmission Date: 20141002
  Serious: Yes (Life-Threatening, Hospitalization, Other)
  Sender: FDA-Public Use
  Company Number: US-PFIZER INC-2013359171

PATIENT
  Age: 70 Year
  Sex: Female
  Weight: 86.37 kg

DRUGS (24)
  1. TIKOSYN [Suspect]
     Indication: ARRHYTHMIA
     Dosage: 0.125 MG, 3X/DAY
     Route: 048
     Dates: start: 20131001, end: 20131121
  2. TIKOSYN [Interacting]
     Indication: ATRIAL FLUTTER
  3. ZOFRAN [Interacting]
     Indication: NAUSEA
     Dosage: 4 MG, UNK
     Dates: start: 20131121
  4. BACLOFEN [Concomitant]
     Dosage: 10 MG, 4X/DAY
     Route: 048
  5. WARFARIN [Concomitant]
     Dosage: 4 MG, DAILY (EXCEPT 4MG MF)
  6. METOPROLOL [Concomitant]
     Dosage: 25 MG, DAILY
     Route: 048
  7. METFORMIN [Concomitant]
     Dosage: 500 MG, 2X/DAY
     Route: 048
  8. OXYCODONE [Concomitant]
     Dosage: 5 MG, EVERY 6 HOURS AS NEEDED
     Route: 048
  9. NYSTATIN [Concomitant]
     Dosage: 1 DF, 2X/DAY (1 APPLICATION TO AFFECTED AREA TWICE DAILY)
  10. DOCUSATE SODIUM [Concomitant]
     Dosage: 100 MG, 2X/DAY
     Route: 048
  11. EPIPEN [Concomitant]
     Dosage: 0.3 ML, AS NEEDED (0.3 MG/0.3 ML (1:1,000) ATLN)
     Route: 030
  12. VITAMIN D3 [Concomitant]
     Dosage: 5000 IU, 1X/DAY (VITAMIN D3, (VITAMIN D) 1,000 UNIT TAB)
     Route: 048
  13. LUMIGAN [Concomitant]
     Dosage: 0.01 %, 1X/DAY (1 DROP IN THE LEFT EYE DAILY AT BEDTIME)
     Route: 047
  14. BRIMONIDINE [Concomitant]
     Dosage: 0.2 %, 3X/DAY (1 DROP IN BOTH EYES THREE TIMES DAILY)
     Route: 047
  15. DORZOLAMIDE HYDROCHLORIDE/TIMOLOL MALEATE [Concomitant]
     Dosage: 2-0.5 % OPHTHALMIC SOLUTION: USE 1 DROP IN BOTH EYES THREE TIMES DAILY
  16. BIOTIN [Concomitant]
     Dosage: 1 MG, 1X/DAY
     Route: 048
  17. SIMETHICONE [Concomitant]
     Dosage: 80 MG, 4X/DAY
     Route: 048
  18. CARBOXYMETHYLCELLULOSE SODIUM/GLYCERIN [Concomitant]
     Dosage: 1 DF, 4X/DAY (1 DROP FOUR TIMES DAILY. BOTH EYES.)
  19. DIPHENHYDRAMINE [Concomitant]
     Dosage: 25 MG, (EVERY 6 HOURS AS NEEDED)
     Route: 048
  20. NYSTATIN [Concomitant]
     Dosage: 2 ML, 4X/DAY (100,000 UNIT/ML SUSPENSION: TAKE 2 ML BY MOUTH FOUR TIMES DAILY)
     Route: 048
  21. TETRACYCLINE [Concomitant]
     Dosage: 2 G, UNK
  22. HYDROCORTISONE [Concomitant]
     Dosage: 50 MG, UNK
  23. CLOBETASOL 0.05% [Concomitant]
     Dosage: 1 DF, 2X/DAY (APPLY 1 APPLICATION TO AFFECTED AREA TWICE DAILY)
     Route: 061
  24. COUMADIN [Concomitant]
     Dosage: 6 MG, DAILY

REACTIONS (7)
  - Drug interaction [Recovered/Resolved]
  - Torsade de pointes [Recovered/Resolved]
  - Ventricular tachycardia [Recovered/Resolved]
  - Electrocardiogram QT prolonged [Recovered/Resolved]
  - Ventricular extrasystoles [Recovered/Resolved]
  - Gallbladder disorder [Unknown]
  - Atrial fibrillation [Recovered/Resolved]
